FAERS Safety Report 5788220-5 (Version None)
Quarter: 2008Q2

REPORT INFORMATION
  Report Type: 
  Country: None (occurrence: None)
  Receive Date: 20080623
  Receipt Date: 20080610
  Transmission Date: 20081010
  Serious: Yes (Hospitalization)
  Sender: FDA-Public Use
  Company Number: 2008BI011318

PATIENT
  Age: 64 Year
  Sex: Female

DRUGS (2)
  1. ZEVALIN [Suspect]
     Indication: B-CELL LYMPHOMA
     Dosage: 32.7 MCI;X1;IV
     Route: 042
     Dates: start: 20071205, end: 20071212
  2. RITUXAN [Concomitant]

REACTIONS (2)
  - FEELING HOT [None]
  - TRANSIENT ISCHAEMIC ATTACK [None]
